FAERS Safety Report 20407035 (Version 1)
Quarter: 2022Q1

REPORT INFORMATION
  Report Type: Spontaneous
  Country: SV (occurrence: SV)
  Receive Date: 20220131
  Receipt Date: 20220131
  Transmission Date: 20220423
  Serious: Yes (Death, Hospitalization)
  Sender: FDA-Public Use
  Company Number: SV-ELI_LILLY_AND_COMPANY-SV202201011415

PATIENT
  Age: 65 Year
  Sex: Male

DRUGS (2)
  1. BASAGLAR [Suspect]
     Active Substance: INSULIN GLARGINE
     Indication: Diabetic foot
     Dosage: 14 INTERNATIONAL UNIT, UNKNOWN
     Route: 065
     Dates: start: 20220119
  2. BASAGLAR [Suspect]
     Active Substance: INSULIN GLARGINE
     Indication: Hyperglycaemia

REACTIONS (2)
  - Hypoglycaemia [Fatal]
  - Incorrect dose administered [Fatal]

NARRATIVE: CASE EVENT DATE: 20220122
